FAERS Safety Report 8398585-6 (Version None)
Quarter: 2012Q2

REPORT INFORMATION
  Report Type: 
  Country: None (occurrence: None)
  Receive Date: 20120531
  Receipt Date: 20120528
  Transmission Date: 20120825
  Serious: Yes (Hospitalization, Other)
  Sender: FDA-Public Use
  Company Number: US-TEVA-340392USA

PATIENT
  Age: 30 Year
  Sex: Male

DRUGS (10)
  1. HYDROCODONE BITARTRATE + ACETAMINOPHEN [Concomitant]
     Indication: FACIAL BONES FRACTURE
     Dosage: 10/500MG AS NEEDED
     Route: 065
  2. SUCCINYLCHOLINE CHLORIDE [Suspect]
     Indication: INDUCTION OF ANAESTHESIA
     Route: 065
  3. FENTANYL-100 [Suspect]
     Indication: INDUCTION OF ANAESTHESIA
     Route: 065
  4. PROPOFOL [Suspect]
     Indication: INDUCTION OF ANAESTHESIA
     Route: 065
  5. CYCLOBENZAPRINE [Concomitant]
     Indication: MUSCLE SPASMS
     Route: 065
  6. LIDOCAINE [Suspect]
     Indication: INDUCTION OF ANAESTHESIA
     Route: 065
  7. SERTRALINE HYDROCHLORIDE [Concomitant]
     Indication: POST-TRAUMATIC STRESS DISORDER
     Dosage: 100MG DAILY
     Route: 065
  8. SEVOFLURANE [Suspect]
     Indication: MAINTENANCE OF ANAESTHESIA
     Route: 055
  9. MIDAZOLAM [Suspect]
     Indication: INDUCTION OF ANAESTHESIA
     Route: 065
  10. SERTRALINE HYDROCHLORIDE [Concomitant]
     Indication: DEPRESSION
     Dosage: 100MG DAILY
     Route: 065

REACTIONS (1)
  - STRESS CARDIOMYOPATHY [None]
